FAERS Safety Report 8074109-8 (Version None)
Quarter: 2012Q1

REPORT INFORMATION
  Report Type: 
  Country: None (occurrence: None)
  Receive Date: 20120126
  Receipt Date: 20120124
  Transmission Date: 20120608
  Serious: Yes (Other)
  Sender: FDA-Public Use
  Company Number: AU-BAYER-2012-005121

PATIENT
  Age: 6 Week
  Sex: Male

DRUGS (1)
  1. MAGNEVIST [Suspect]
     Dosage: UNK
     Dates: start: 20110401, end: 20110401

REACTIONS (30)
  - DEPRESSED MOOD [None]
  - HYPEREXPLEXIA [None]
  - TONGUE DISORDER [None]
  - RASH [None]
  - ARACHNOIDITIS [None]
  - RHINORRHOEA [None]
  - INCREASED TENDENCY TO BRUISE [None]
  - EAR DISCOMFORT [None]
  - ERYTHEMA [None]
  - HYPERHIDROSIS [None]
  - BALANCE DISORDER [None]
  - CAPILLARY DISORDER [None]
  - GENITAL TRACT INFLAMMATION [None]
  - VOMITING [None]
  - HEPATIC ENZYME INCREASED [None]
  - LYMPHADENOPATHY [None]
  - MYDRIASIS [None]
  - PUPILS UNEQUAL [None]
  - GENITAL ERYTHEMA [None]
  - DARK CIRCLES UNDER EYES [None]
  - ABDOMINAL DISCOMFORT [None]
  - DIARRHOEA [None]
  - URTICARIA [None]
  - CONJUNCTIVITIS [None]
  - INFLAMMATION [None]
  - MUSCULOSKELETAL STIFFNESS [None]
  - BLOOD TEST ABNORMAL [None]
  - MALAISE [None]
  - MUCOUS STOOLS [None]
  - LETHARGY [None]
